FAERS Safety Report 4539299-X (Version None)
Quarter: 2004Q4

REPORT INFORMATION
  Report Type: 
  Country: None (occurrence: None)
  Receive Date: 20041223
  Receipt Date: 20041213
  Transmission Date: 20050328
  Serious: Yes (Other)
  Sender: FDA-Public Use
  Company Number: 04-000892

PATIENT
  Age: 22 Year
  Sex: Female
  Weight: 129.3 kg

DRUGS (1)
  1. OVCON-35 [Suspect]
     Indication: CONTRACEPTION
     Dosage: 35/400 UG, QD, ORAL
     Route: 048
     Dates: start: 20040901, end: 20041001

REACTIONS (3)
  - ABORTION SPONTANEOUS [None]
  - DRUG EXPOSURE DURING PREGNANCY [None]
  - PREGNANCY ON ORAL CONTRACEPTIVE [None]
